FAERS Safety Report 16533734 (Version 1)
Quarter: 2019Q3

REPORT INFORMATION
  Report Type: Spontaneous
  Country: JP (occurrence: JP)
  Receive Date: 20190705
  Receipt Date: 20190705
  Transmission Date: 20191004
  Serious: Yes (Hospitalization, Other)
  Sender: FDA-Public Use
  Company Number: JP-009507513-1907JPN000005J

PATIENT
  Age: 8 Decade
  Sex: Female

DRUGS (3)
  1. LENDORMIN [Concomitant]
     Active Substance: BROTIZOLAM
     Dosage: UNK
     Route: 065
  2. DEPAS [Concomitant]
     Dosage: UNK
     Route: 065
  3. BELSOMRA [Suspect]
     Active Substance: SUVOREXANT
     Indication: INSOMNIA
     Dosage: 20 MILLIGRAM, QD
     Route: 048

REACTIONS (6)
  - Fall [Unknown]
  - Overdose [Unknown]
  - Delirium [Unknown]
  - Seizure [Unknown]
  - Fracture [Unknown]
  - Pyrexia [Unknown]
